FAERS Safety Report 5876418-7 (Version None)
Quarter: 2008Q3

REPORT INFORMATION
  Report Type: 
  Country: None (occurrence: None)
  Receive Date: 20080908
  Receipt Date: 20080908
  Transmission Date: 20090109
  Serious: No
  Sender: FDA-Public Use
  Company Number: None

PATIENT
  Age: 38 Year
  Sex: Female

DRUGS (1)
  1. GADOBENATE DIAMEGLUMINE BRACCO [Suspect]
     Indication: SCAN
     Dates: start: 20080903, end: 20080903

REACTIONS (2)
  - PRURITUS [None]
  - URTICARIA [None]
